FAERS Safety Report 7375117-2 (Version None)
Quarter: 2011Q1

REPORT INFORMATION
  Report Type: 
  Country: None (occurrence: None)
  Receive Date: 20110325
  Receipt Date: 20110314
  Transmission Date: 20110831
  Serious: Yes (Hospitalization)
  Sender: FDA-Public Use
  Company Number: JP-SANOFI-AVENTIS-2011SA015511

PATIENT
  Age: 68 Year
  Sex: Female
  Weight: 57.9 kg

DRUGS (1)
  1. DRONEDARONE [Suspect]
     Route: 048
     Dates: start: 20110310

REACTIONS (3)
  - BLOOD CREATININE INCREASED [None]
  - FATIGUE [None]
  - BLOOD PRESSURE DECREASED [None]
